FAERS Safety Report 7740297-3 (Version None)
Quarter: 2011Q3

REPORT INFORMATION
  Report Type: 
  Country: None (occurrence: None)
  Receive Date: 20110909
  Receipt Date: 20110224
  Transmission Date: 20111222
  Serious: No
  Sender: FDA-Public Use
  Company Number: US-BAYER-2011-017909

PATIENT
  Age: 47 Year
  Sex: Female

DRUGS (1)
  1. MIRENA [Suspect]
     Indication: PRODUCT USED FOR UNKNOWN INDICATION
     Dosage: 20 ?G/D, CONT
     Route: 015
     Dates: start: 20110215, end: 20110217

REACTIONS (7)
  - ABDOMINAL DISTENSION [None]
  - NAUSEA [None]
  - CERVIX DISORDER [None]
  - VULVOVAGINAL SWELLING [None]
  - HYPERSENSITIVITY [None]
  - ABDOMINAL PAIN [None]
  - DIZZINESS [None]
